FAERS Safety Report 6345616-0 (Version None)
Quarter: 2009Q3

REPORT INFORMATION
  Report Type: 
  Country: None (occurrence: None)
  Receive Date: 20090909
  Receipt Date: 20090831
  Transmission Date: 20100115
  Serious: Yes (Death, Hospitalization, Other)
  Sender: FDA-Public Use
  Company Number: KR-ROCHE-653393

PATIENT
  Age: 40 Year
  Sex: Female

DRUGS (17)
  1. MYCOPHENOLATE MOFETIL [Suspect]
     Indication: DERMATOMYOSITIS
     Route: 065
  2. PREDNISOLONE [Suspect]
     Indication: DERMATOMYOSITIS
     Route: 048
  3. PREDNISOLONE [Suspect]
     Dosage: DOSE TAPERED
     Route: 048
  4. PREDNISOLONE [Suspect]
     Route: 048
  5. AZATHIOPRINE [Suspect]
     Indication: DERMATOMYOSITIS
     Route: 065
  6. CYCLOSPORINE [Suspect]
     Indication: DERMATOMYOSITIS
     Route: 048
  7. CYCLOSPORINE [Suspect]
     Route: 048
  8. CYCLOPHOSPHAMIDE [Suspect]
     Indication: DERMATOMYOSITIS
     Route: 065
  9. TRIAMCINOLONE [Suspect]
     Indication: DERMATOMYOSITIS
     Route: 065
  10. ACETAMINOPHEN [Suspect]
     Indication: ANTIINFLAMMATORY THERAPY
     Route: 065
  11. METHOTREXATE [Suspect]
     Indication: DRUG USE FOR UNKNOWN INDICATION
     Route: 065
  12. IMMUNE GLOBULIN INTRAVENOUS (HUMAN) [Suspect]
     Indication: IMMUNOSUPPRESSION
     Route: 065
  13. IMMUNE GLOBULIN INTRAVENOUS (HUMAN) [Suspect]
     Route: 065
  14. METHYLPREDNISOLONE [Suspect]
     Indication: STEROID THERAPY
     Dosage: STEROID PULSE THERAPY
     Route: 065
  15. CEFTAZIDIME [Suspect]
     Indication: ANTIBIOTIC THERAPY
     Route: 042
  16. VANCOMYCIN [Suspect]
     Indication: ANTIBIOTIC THERAPY
     Route: 042
  17. PIPERACILLIN SODIUM AND TAZOBACTAM SODIUM [Suspect]
     Indication: ANTIBIOTIC THERAPY
     Route: 042

REACTIONS (5)
  - ANGIOCENTRIC LYMPHOMA [None]
  - HISTIOCYTOSIS HAEMATOPHAGIC [None]
  - MULTI-ORGAN FAILURE [None]
  - SEPSIS [None]
  - SYSTEMIC INFLAMMATORY RESPONSE SYNDROME [None]
